FAERS Safety Report 15564975 (Version 1)
Quarter: 2018Q4

REPORT INFORMATION
  Report Type: Spontaneous
  Country: US (occurrence: US)
  Receive Date: 20181030
  Receipt Date: 20181030
  Transmission Date: 20190205
  Serious: Yes (Hospitalization, Other)
  Sender: FDA-Public Use
  Company Number: US-AMGEN-USASP2018149124

PATIENT
  Age: 72 Year
  Sex: Male

DRUGS (1)
  1. ENBREL [Suspect]
     Active Substance: ETANERCEPT
     Indication: RHEUMATOID ARTHRITIS
     Dosage: 50 MG, UNK
     Route: 065
     Dates: start: 2008

REACTIONS (6)
  - Nodule [Unknown]
  - Injection site erythema [Recovered/Resolved]
  - Wrong technique in product usage process [Unknown]
  - Mobility decreased [Unknown]
  - Blood iron decreased [Unknown]
  - Pneumonia [Unknown]

NARRATIVE: CASE EVENT DATE: 20181003
